FAERS Safety Report 9968176 (Version 1)
Quarter: 2014Q1

REPORT INFORMATION
  Report Type: Report from Study
  Country: US (occurrence: US)
  Receive Date: 20140306
  Receipt Date: 20140306
  Transmission Date: 20141002
  Serious: No
  Sender: FDA-Public Use
  Company Number: US-ABBVIE-13P-163-1142895-00

PATIENT
  Age: 59 Year
  Sex: Female
  Weight: 152.09 kg

DRUGS (19)
  1. HUMIRA [Suspect]
     Indication: PSORIASIS
     Dates: start: 20130729, end: 20130729
  2. HUMIRA [Suspect]
     Dates: start: 20130805
  3. DESONIDE [Concomitant]
     Indication: PSORIASIS
  4. CLOBETASOL [Concomitant]
     Indication: PSORIASIS
  5. CALCIPOTRIENE [Concomitant]
     Indication: PSORIASIS
  6. ALBUTEROL [Concomitant]
     Indication: ASTHMA
  7. UNKNOWN ASTHMA MEDICATION [Concomitant]
     Indication: ASTHMA
     Route: 055
  8. XANAX [Concomitant]
     Indication: ANXIETY
  9. FLEXERIL [Concomitant]
     Indication: MUSCLE RELAXANT THERAPY
  10. VITAMIN D [Concomitant]
     Indication: VITAMIN D DEFICIENCY
  11. SYNTHROID [Concomitant]
     Indication: HYPOTHYROIDISM
  12. QVAR [Concomitant]
     Indication: ASTHMA
  13. MAGNESIUM OXIDE [Concomitant]
     Indication: PRODUCT USED FOR UNKNOWN INDICATION
  14. SKELAXIN [Concomitant]
     Indication: MUSCLE RELAXANT THERAPY
  15. PRILOSEC [Concomitant]
     Indication: PRODUCT USED FOR UNKNOWN INDICATION
  16. PERCOCET [Concomitant]
     Indication: PAIN
  17. POTASSIUM [Concomitant]
     Indication: HYPOKALAEMIA
  18. AMBIEN [Concomitant]
     Indication: INSOMNIA
  19. METRONIDAZOLE [Concomitant]
     Indication: PRODUCT USED FOR UNKNOWN INDICATION

REACTIONS (2)
  - Haematochezia [Unknown]
  - Gastric infection [Unknown]
